FAERS Safety Report 11821944 (Version 4)
Quarter: 2016Q2

REPORT INFORMATION
  Report Type: Spontaneous
  Country: US (occurrence: US)
  Receive Date: 20151210
  Receipt Date: 20160413
  Transmission Date: 20160815
  Serious: Yes (Other)
  Sender: FDA-Public Use
  Company Number: US-JNJFOC-20150706913

PATIENT
  Age: 82 Year
  Sex: Female

DRUGS (3)
  1. IMBRUVICA [Suspect]
     Active Substance: IBRUTINIB
     Indication: CHRONIC LYMPHOCYTIC LEUKAEMIA
     Route: 048
     Dates: start: 20150203
  2. IMBRUVICA [Suspect]
     Active Substance: IBRUTINIB
     Indication: MENISCUS INJURY
     Route: 048
     Dates: start: 20150203
  3. PERCOCET [Concomitant]
     Active Substance: ACETAMINOPHEN\OXYCODONE HYDROCHLORIDE

REACTIONS (9)
  - Contusion [Unknown]
  - Weight decreased [Recovering/Resolving]
  - Burkitt^s lymphoma [Recovered/Resolved]
  - Dysphagia [Unknown]
  - Prescribed underdose [Not Recovered/Not Resolved]
  - Throat cancer [Unknown]
  - Arthralgia [Recovering/Resolving]
  - Glossodynia [Recovered/Resolved]
  - Haemoptysis [Unknown]

NARRATIVE: CASE EVENT DATE: 20150220
